FAERS Safety Report 5420367-5 (Version None)
Quarter: 2007Q3

REPORT INFORMATION
  Report Type: 
  Country: None (occurrence: None)
  Receive Date: 20070816
  Receipt Date: 20070720
  Transmission Date: 20080115
  Serious: Yes (Other)
  Sender: FDA-Public Use
  Company Number: 678 / 6036234

PATIENT
  Age: 39 Year
  Sex: Male

DRUGS (1)
  1. FLUCONAZOLE [Suspect]
     Dosage: 150 MG, TWO DOSES

REACTIONS (12)
  - APOPTOSIS [None]
  - ASTHENIA [None]
  - CHOLESTASIS [None]
  - DRUG HYPERSENSITIVITY [None]
  - EOSINOPHILIA [None]
  - HEPATITIS [None]
  - JAUNDICE [None]
  - MALAISE [None]
  - OCULAR ICTERUS [None]
  - PYREXIA [None]
  - RASH ERYTHEMATOUS [None]
  - RASH PRURITIC [None]
